FAERS Safety Report 4944718-0 (Version None)
Quarter: 2006Q1

REPORT INFORMATION
  Report Type: 
  Country: None (occurrence: None)
  Receive Date: 20060315
  Receipt Date: 20060306
  Transmission Date: 20060701
  Serious: Yes (Other)
  Sender: FDA-Public Use
  Company Number: DE-BOEHRINGER INGELHEIM PHARMACEUTICALS, INC.-2006-DE-01222DE

PATIENT
  Age: 70 Year
  Sex: Male
  Weight: 70 kg

DRUGS (4)
  1. ALNA OCAS [Suspect]
     Indication: BENIGN PROSTATIC HYPERPLASIA
     Route: 048
     Dates: start: 20051101
  2. BETABLOCKER [Concomitant]
     Indication: HYPERTENSION
  3. ALLOPURINOL [Concomitant]
  4. MEVINACOR [Concomitant]

REACTIONS (4)
  - GENERALISED ERYTHEMA [None]
  - LOCAL SWELLING [None]
  - RASH [None]
  - URTICARIA [None]
